FAERS Safety Report 6112220-9 (Version None)
Quarter: 2009Q1

REPORT INFORMATION
  Report Type: 
  Country: None (occurrence: None)
  Receive Date: 20090310
  Receipt Date: 20081117
  Transmission Date: 20090719
  Serious: Yes (Life-Threatening)
  Sender: FDA-Public Use
  Company Number: 2008EU002603

PATIENT
  Age: 80 Year
  Sex: Female

DRUGS (3)
  1. VESICARE [Suspect]
     Indication: INCONTINENCE
     Dosage: 5 MG, UID/QD, ORAL
     Route: 048
     Dates: start: 20081025, end: 20081104
  2. IBANDRONIC ACID (IBANDRONIC ACID) [Concomitant]
  3. CONDRAL (CHONDROITIN SULFATE SODIUM) [Concomitant]

REACTIONS (1)
  - LARYNGEAL OEDEMA [None]
